FAERS Safety Report 9228890 (Version 1)
Quarter: 2013Q2

REPORT INFORMATION
  Report Type: Spontaneous
  Country: BR (occurrence: BR)
  Receive Date: 20130412
  Receipt Date: 20130412
  Transmission Date: 20140414
  Serious: Yes (Life-Threatening, Other)
  Sender: FDA-Public Use
  Company Number: PHHY2013BR035298

PATIENT
  Sex: Female

DRUGS (5)
  1. RITALINE [Suspect]
     Indication: ATTENTION DEFICIT/HYPERACTIVITY DISORDER
     Dosage: 4 DF, DAILY
     Route: 048
     Dates: end: 201301
  2. HYDROCORTISONE [Suspect]
     Indication: HYPOTHALAMO-PITUITARY DISORDER
     Dosage: 10 MG, QD
  3. SERTRALINE [Concomitant]
     Indication: DEPRESSION
     Dosage: 100 MG, QD
  4. ALPRAZOLAM [Concomitant]
     Indication: ANXIETY
     Dosage: 10 MG, BID
  5. VICTOZA [Concomitant]
     Dosage: 1.8, UKN

REACTIONS (14)
  - Feeling abnormal [Unknown]
  - Cataract [Recovering/Resolving]
  - Blindness [Recovering/Resolving]
  - Organ failure [Recovering/Resolving]
  - Cushing^s syndrome [Recovering/Resolving]
  - Hypothalamo-pituitary disorder [Recovering/Resolving]
  - Adrenal disorder [Recovering/Resolving]
  - Osteoporosis [Recovering/Resolving]
  - Weight increased [Recovering/Resolving]
  - Swelling [Recovering/Resolving]
  - Vomiting [Recovering/Resolving]
  - Diarrhoea [Recovering/Resolving]
  - Pain [Recovering/Resolving]
  - Dyskinesia [Recovering/Resolving]
